FAERS Safety Report 12934873 (Version 1)
Quarter: 2016Q4

REPORT INFORMATION
  Report Type: Report from Study
  Country: IT (occurrence: IT)
  Receive Date: 20161112
  Receipt Date: 20161112
  Transmission Date: 20170207
  Serious: Yes (Other)
  Sender: FDA-Public Use
  Company Number: IT-ACCORD-045510

PATIENT
  Age: 85 Year
  Sex: Female

DRUGS (3)
  1. TRAMADOL/TRAMADOL HYDROCHLORIDE [Suspect]
     Active Substance: TRAMADOL HYDROCHLORIDE
     Indication: ANALGESIC THERAPY
     Route: 048
     Dates: start: 20160304, end: 20160304
  2. PARACETAMOL [Suspect]
     Active Substance: ACETAMINOPHEN
     Indication: ANALGESIC THERAPY
     Route: 048
     Dates: start: 20160304, end: 20160304
  3. BUPRENORPHINE/BUPRENORPHINE HYDROCHLORIDE [Suspect]
     Active Substance: BUPRENORPHINE HYDROCHLORIDE
     Indication: ANALGESIC THERAPY
     Dosage: 75 MG TOTAL
     Route: 061
     Dates: start: 20160304, end: 20160304

REACTIONS (6)
  - Hyperglycaemia [Unknown]
  - Vomiting [Recovered/Resolved]
  - Drug abuse [Unknown]
  - Nausea [Recovered/Resolved]
  - Sopor [Recovered/Resolved]
  - Abdominal pain [Recovered/Resolved]

NARRATIVE: CASE EVENT DATE: 20160306
